FAERS Safety Report 25131755 (Version 1)
Quarter: 2025Q1

REPORT INFORMATION
  Report Type: Spontaneous
  Country: US (occurrence: US)
  Receive Date: 20250327
  Receipt Date: 20250327
  Transmission Date: 20250409
  Serious: Yes (Other)
  Sender: MALLINCKRODT
  Company Number: US-MALLINCKRODT-MNK202501708

PATIENT
  Age: 15 Year
  Sex: Male
  Weight: 41 kg

DRUGS (22)
  1. UVADEX [Suspect]
     Active Substance: METHOXSALEN
     Indication: Acute graft versus host disease
     Route: 050
     Dates: start: 20250224
  2. HEPARIN [Suspect]
     Active Substance: HEPARIN SODIUM
     Indication: Anticoagulant therapy
     Dosage: 3000-4000 UNITS (10,000IU/500ML NACL)
  3. ANTICOAGULANT CITRATE DEXTROSE SOLUTION (ACD) NOS [Concomitant]
     Active Substance: CITRIC ACID MONOHYDRATE\DEXTROSE\SODIUM CITRATE
     Indication: Anticoagulant therapy
     Dates: start: 20250321
  4. ALBUTEROL [Concomitant]
     Active Substance: ALBUTEROL
  5. AMLODIPINE BESYLATE [Concomitant]
     Active Substance: AMLODIPINE BESYLATE
  6. CETIRIZINE [Concomitant]
     Active Substance: CETIRIZINE HYDROCHLORIDE
  7. ISAVUCONAZONIUM SULFATE [Concomitant]
     Active Substance: ISAVUCONAZONIUM SULFATE
  8. MELATONIN [Concomitant]
     Active Substance: MELATONIN
  9. METHYLPREDNISOLONE [Concomitant]
     Active Substance: METHYLPREDNISOLONE
  10. MYCOPHENOLIC ACID [Concomitant]
     Active Substance: MYCOPHENOLIC ACID
  11. ONDANSETRON [Concomitant]
     Active Substance: ONDANSETRON
  12. PANTOPRAZOLE [Concomitant]
     Active Substance: PANTOPRAZOLE
  13. PENICILLIN G SODIUM [Concomitant]
     Active Substance: PENICILLIN G SODIUM
  14. PENTAMIDINE [Concomitant]
     Active Substance: PENTAMIDINE
  15. RIFAXIMIN [Concomitant]
     Active Substance: RIFAXIMIN
  16. RUXOLITINIB [Concomitant]
     Active Substance: RUXOLITINIB
  17. URSODIOL [Concomitant]
     Active Substance: URSODIOL
  18. VALACYCLOVIR [Concomitant]
     Active Substance: VALACYCLOVIR HYDROCHLORIDE
  19. FENTANYL [Concomitant]
     Active Substance: FENTANYL
  20. NALOXONE [Concomitant]
     Active Substance: NALOXONE
  21. AMINO ACIDS\CARBOHYDRATES\MINERALS\VITAMINS [Concomitant]
     Active Substance: AMINO ACIDS\CARBOHYDRATES\MINERALS\VITAMINS
  22. TACROLIMUS [Concomitant]
     Active Substance: TACROLIMUS

REACTIONS (5)
  - Gastrointestinal haemorrhage [Unknown]
  - Gastritis [Unknown]
  - Epistaxis [Unknown]
  - Blood sodium decreased [Unknown]
  - Product use in unapproved indication [Unknown]

NARRATIVE: CASE EVENT DATE: 20250224
